FAERS Safety Report 18958783 (Version 34)
Quarter: 2025Q4

REPORT INFORMATION
  Report Type: Spontaneous
  Country: CA (occurrence: CA)
  Receive Date: 20210302
  Receipt Date: 20251203
  Transmission Date: 20260117
  Serious: Yes (Death, Other)
  Sender: GLAXOSMITHKLINE
  Company Number: CA-GLAXOSMITHKLINE-CA2021GSK053562

PATIENT
  Age: 34 Year
  Sex: Female
  Weight: 81 kg

DRUGS (73)
  1. WELLBUTRIN XL [Suspect]
     Active Substance: BUPROPION HYDROCHLORIDE
     Indication: Product used for unknown indication
     Dosage: 300 MG, QD
     Route: 065
  2. WELLBUTRIN XL [Suspect]
     Active Substance: BUPROPION HYDROCHLORIDE
     Dosage: 1 DF
     Route: 065
  3. WELLBUTRIN XL [Suspect]
     Active Substance: BUPROPION HYDROCHLORIDE
     Dosage: 300 MG, QD  (EXTENDED/PROLONGED RELEASE TABLET)
  4. WELLBUTRIN XL [Suspect]
     Active Substance: BUPROPION HYDROCHLORIDE
     Dosage: 1 DF, QD (1 IN 24 HR) (1 IN 1 D)
     Route: 065
  5. WELLBUTRIN XL [Suspect]
     Active Substance: BUPROPION HYDROCHLORIDE
     Dosage: PROLONGED RELEASE TABLET (1 DOSAGE FORMS)
     Route: 065
  6. WELLBUTRIN XL [Suspect]
     Active Substance: BUPROPION HYDROCHLORIDE
     Dosage: PROLONGED RELEASE TABLET (1 DOSAGE FORMS)
  7. WELLBUTRIN XL [Suspect]
     Active Substance: BUPROPION HYDROCHLORIDE
     Dosage: 300 MG, QD (PROLONGED RELEASE TABLET)
     Route: 065
  8. WELLBUTRIN XL [Suspect]
     Active Substance: BUPROPION HYDROCHLORIDE
     Dosage: 300 MG (1 IN 24 HOUR)
     Route: 065
  9. BENZOYL PEROXIDE\CLINDAMYCIN PHOSPHATE [Suspect]
     Active Substance: BENZOYL PEROXIDE\CLINDAMYCIN PHOSPHATE
     Indication: Product used for unknown indication
     Dosage: 1 DF, QD 1 IN 24 HR, 1 DOSAGE FORMS
  10. BENZOYL PEROXIDE\CLINDAMYCIN PHOSPHATE [Suspect]
     Active Substance: BENZOYL PEROXIDE\CLINDAMYCIN PHOSPHATE
     Dosage: 1 DF, QD
  11. BENZOYL PEROXIDE\CLINDAMYCIN PHOSPHATE [Suspect]
     Active Substance: BENZOYL PEROXIDE\CLINDAMYCIN PHOSPHATE
     Dosage: 1 DF, QD
     Route: 065
  12. BENZOYL PEROXIDE\CLINDAMYCIN PHOSPHATE [Suspect]
     Active Substance: BENZOYL PEROXIDE\CLINDAMYCIN PHOSPHATE
     Dosage: 1 DF
     Route: 065
  13. BUPROPION [Suspect]
     Active Substance: BUPROPION
     Indication: Product used for unknown indication
     Dosage: UNK
     Route: 065
  14. BUPROPION [Suspect]
     Active Substance: BUPROPION
     Dosage: 300 MG, QD (24 HRS)
  15. BUPROPION [Suspect]
     Active Substance: BUPROPION
     Dosage: 1 DF
     Route: 065
  16. BUPROPION [Suspect]
     Active Substance: BUPROPION
     Dosage: 300 MG, QD, 1 IN 24 HR
     Route: 065
  17. BUPROPION [Suspect]
     Active Substance: BUPROPION
     Dosage: 1 DF, QD; 1 IN 24 HR (2 ADMINISTRATIONS)
     Route: 065
  18. BUPROPION [Suspect]
     Active Substance: BUPROPION
     Dosage: 300 MG, QD 1 IN 24 HR
     Route: 065
  19. BUPROPION [Suspect]
     Active Substance: BUPROPION
     Dosage: 300 MG, QD 1 IN 24 HR (2 ADMINISTRATIONS)
     Route: 065
  20. BUPROPION [Suspect]
     Active Substance: BUPROPION
     Dosage: 1 DF, QD; 1 IN 24 HR
     Route: 065
  21. BUPROPION [Suspect]
     Active Substance: BUPROPION
     Dosage: 300 MG 1 IN 24 HR (3 ADMINISTRATIONS)
  22. BUPROPION [Suspect]
     Active Substance: BUPROPION
     Dosage: UNK
     Route: 065
  23. BUPROPION [Suspect]
     Active Substance: BUPROPION
     Dosage: UNK
     Route: 065
  24. BUPROPION [Suspect]
     Active Substance: BUPROPION
     Dosage: 1 DF, QD
  25. ERYTHROMYCIN [Suspect]
     Active Substance: ERYTHROMYCIN
     Indication: Acne
     Dosage: 1 DF, QD IN 24 HOUR
     Route: 065
  26. ERYTHROMYCIN [Suspect]
     Active Substance: ERYTHROMYCIN
     Indication: Product used for unknown indication
     Dosage: 1 DF, QD
     Route: 065
  27. ERYTHROMYCIN [Suspect]
     Active Substance: ERYTHROMYCIN
     Dosage: 1 DF, QD(1 IN 24 HOUR)
  28. ERYTHROMYCIN [Suspect]
     Active Substance: ERYTHROMYCIN
     Dosage: 1 DF, QD (1 IN 24 HOUR)
     Route: 065
  29. ERYTHROMYCIN [Suspect]
     Active Substance: ERYTHROMYCIN
     Dosage: 1 DF, QD( 1IN 24 HOUR)
     Route: 065
  30. TRETINOIN [Suspect]
     Active Substance: TRETINOIN
     Indication: Acne
     Dosage: 1 DF, QD (2 ADMINISTRATIONS)
  31. TRETINOIN [Suspect]
     Active Substance: TRETINOIN
     Dosage: 1 DF, QD (1 DOSAGE FORMS,1 IN 1 D)
  32. ERYTHROMYCIN\TRETINOIN [Suspect]
     Active Substance: ERYTHROMYCIN\TRETINOIN
     Indication: Acne
     Dosage: 1 DF, QD 1 IN 24 HOURS
  33. ERYTHROMYCIN\TRETINOIN [Suspect]
     Active Substance: ERYTHROMYCIN\TRETINOIN
     Dosage: 1 DF, QD 1 IN 24 HOURS
     Route: 065
  34. QUETIAPINE [Suspect]
     Active Substance: QUETIAPINE
     Indication: Product used for unknown indication
     Dosage: 100 MG, QD
  35. QUETIAPINE [Suspect]
     Active Substance: QUETIAPINE
     Dosage: 1 MG, QD
  36. QUETIAPINE [Suspect]
     Active Substance: QUETIAPINE
     Dosage: UNK
     Route: 065
  37. QUETIAPINE [Suspect]
     Active Substance: QUETIAPINE
     Dosage: 1 DF, QD
  38. QUETIAPINE [Suspect]
     Active Substance: QUETIAPINE
     Dosage: 100 MG, QD (1 IN 24 HR)
  39. QUETIAPINE [Suspect]
     Active Substance: QUETIAPINE
     Dosage: 1 DF, QD (1 IN 24 HR) (1 IN 1 D)
  40. QUETIAPINE [Suspect]
     Active Substance: QUETIAPINE
     Dosage: UNK
  41. QUETIAPINE [Suspect]
     Active Substance: QUETIAPINE
     Dosage: UNK
  42. QUETIAPINE [Suspect]
     Active Substance: QUETIAPINE
     Dosage: 100 MG, QD ( 1 IN 1 DAY)
  43. CYMBALTA [Suspect]
     Active Substance: DULOXETINE HYDROCHLORIDE
     Indication: Product used for unknown indication
     Dosage: 30 MG
     Route: 065
  44. CYMBALTA [Suspect]
     Active Substance: DULOXETINE HYDROCHLORIDE
     Dosage: UNK, CAPSULE, DELAYED RELEASE
  45. CYMBALTA [Suspect]
     Active Substance: DULOXETINE HYDROCHLORIDE
     Dosage: 30 MG
     Route: 065
  46. CYMBALTA [Suspect]
     Active Substance: DULOXETINE HYDROCHLORIDE
     Dosage: UNK
     Route: 065
  47. CYMBALTA [Suspect]
     Active Substance: DULOXETINE HYDROCHLORIDE
     Dosage: 30 MG
  48. DULOXETINE [Suspect]
     Active Substance: DULOXETINE
     Indication: Product used for unknown indication
     Dosage: UNK
  49. DULOXETINE [Suspect]
     Active Substance: DULOXETINE
     Dosage: UNK
  50. DULOXETINE [Suspect]
     Active Substance: DULOXETINE
     Dosage: UNK, CAPSULE DELAYED RELEASE
     Route: 065
  51. DULOXETINE [Suspect]
     Active Substance: DULOXETINE
     Dosage: UNK (NOT SPECIFIED)
     Route: 065
  52. DULOXETINE [Suspect]
     Active Substance: DULOXETINE
     Dosage: UNK (NOT SPECIFIED)
     Route: 065
  53. DULOXETINE [Suspect]
     Active Substance: DULOXETINE
     Dosage: 30 MG (NOT SPECIFIED)
     Route: 065
  54. DULOXETINE [Suspect]
     Active Substance: DULOXETINE
     Dosage: UNK (2 ADMINISTRATIONS)
     Route: 065
  55. DULOXETINE [Suspect]
     Active Substance: DULOXETINE
     Dosage: 30 MG
     Route: 065
  56. QUETIAPINE FUMARATE [Suspect]
     Active Substance: QUETIAPINE FUMARATE
     Indication: Product used for unknown indication
     Dosage: 100 MG, QD
  57. ERYTHROMYCIN [Suspect]
     Active Substance: ERYTHROMYCIN
     Indication: Product used for unknown indication
     Dosage: 1 DF, QD
     Route: 065
  58. ERYTHROMYCIN PROPIONATE [Suspect]
     Active Substance: ERYTHROMYCIN PROPIONATE
     Indication: Acne
     Dosage: 1 DF
     Route: 065
  59. ERYTHROMYCIN PROPIONATE [Suspect]
     Active Substance: ERYTHROMYCIN PROPIONATE
     Indication: Product used for unknown indication
     Dosage: 1 DF, QD
     Route: 065
  60. ERYTHROMYCIN PROPIONATE [Suspect]
     Active Substance: ERYTHROMYCIN PROPIONATE
     Dosage: 1 DF, QD (1 DOSAGE FORMS,1 IN 24 HR)
  61. DULOXETINE HYDROCHLORIDE [Suspect]
     Active Substance: DULOXETINE HYDROCHLORIDE
     Indication: Product used for unknown indication
     Dosage: 30 MG
     Route: 065
  62. DULOXETINE HYDROCHLORIDE [Suspect]
     Active Substance: DULOXETINE HYDROCHLORIDE
     Dosage: UNK
     Route: 065
  63. DULOXETINE HYDROCHLORIDE [Suspect]
     Active Substance: DULOXETINE HYDROCHLORIDE
     Dosage: 30 MG
     Route: 065
  64. DULOXETINE HYDROCHLORIDE [Suspect]
     Active Substance: DULOXETINE HYDROCHLORIDE
     Dosage: UNK
     Route: 065
  65. BUPROPION HYDROBROMIDE [Suspect]
     Active Substance: BUPROPION HYDROBROMIDE
     Indication: Product used for unknown indication
     Dosage: 300 MG, QD
  66. BUPROPION HYDROBROMIDE [Suspect]
     Active Substance: BUPROPION HYDROBROMIDE
     Dosage: 1 DF, QD( 1 IN 24 HOUR)
  67. BUPROPION HYDROBROMIDE [Suspect]
     Active Substance: BUPROPION HYDROBROMIDE
     Dosage: 300 MG, QD (1 IN 24 HR)
  68. BUPROPION HYDROBROMIDE [Suspect]
     Active Substance: BUPROPION HYDROBROMIDE
     Dosage: 300 MG, QD (1 IN 24 HR)
  69. FASENRA [Suspect]
     Active Substance: BENRALIZUMAB
     Indication: Asthma
     Dosage: 30 MG
  70. TRETINOIN [Suspect]
     Active Substance: TRETINOIN
     Indication: Acne
     Dosage: 1 DF, QD (1 IN 1 DAY)
  71. BUDESONIDE\FORMOTEROL FUMARATE [Concomitant]
     Active Substance: BUDESONIDE\FORMOTEROL FUMARATE
     Indication: Product used for unknown indication
     Dosage: UNK
  72. PREDNISONE [Concomitant]
     Active Substance: PREDNISONE
     Indication: Product used for unknown indication
     Dosage: UNK
     Route: 065
  73. ALBUTEROL [Concomitant]
     Active Substance: ALBUTEROL
     Indication: Product used for unknown indication
     Dosage: UNK

REACTIONS (4)
  - Epilepsy [Fatal]
  - Pneumonia [Fatal]
  - Abortion spontaneous [Fatal]
  - Maternal exposure during pregnancy [Fatal]
